FAERS Safety Report 4910554-4 (Version None)
Quarter: 2006Q1

REPORT INFORMATION
  Report Type: 
  Country: None (occurrence: None)
  Receive Date: 20060214
  Receipt Date: 20060203
  Transmission Date: 20060701
  Serious: Yes (Other)
  Sender: FDA-Public Use
  Company Number: CH-ROCHE-434889

PATIENT
  Age: 70 Year
  Sex: Male
  Weight: 85 kg

DRUGS (5)
  1. TOREM [Suspect]
     Indication: CARDIAC DISORDER
     Route: 048
     Dates: start: 20050501, end: 20050721
  2. LITHIUM CARBONATE [Interacting]
     Dosage: THERAPY DURATION: SEVERAL YEARS.
     Route: 065
  3. LITHIUM CARBONATE [Interacting]
     Route: 065
  4. ACEPRIL [Interacting]
     Route: 048
     Dates: start: 20050501, end: 20050721
  5. HYGROTON [Interacting]
     Indication: DRUG USE FOR UNKNOWN INDICATION
     Route: 048
     Dates: start: 20050501, end: 20050721

REACTIONS (4)
  - DECREASED APPETITE [None]
  - DRUG INTERACTION [None]
  - FATIGUE [None]
  - TREMOR [None]
